FAERS Safety Report 7483877-5 (Version None)
Quarter: 2011Q2

REPORT INFORMATION
  Report Type: 
  Country: None (occurrence: None)
  Receive Date: 20110517
  Receipt Date: 20110513
  Transmission Date: 20111010
  Serious: Yes (Death, Hospitalization)
  Sender: FDA-Public Use
  Company Number: PHHY2010MX55917

PATIENT
  Sex: Female

DRUGS (3)
  1. BI-EUGLUCON [Concomitant]
     Indication: DIABETES MELLITUS
     Dosage: 2 TABLETS DAILY
  2. SAMYR (ADEMETIONINE TOSILATE SULFATE) [Concomitant]
     Indication: LIVER DISORDER
     Dosage: 1 TABLET DAILY
  3. DIOVAN HCT [Suspect]
     Indication: HYPERTENSION
     Dosage: 160 MG VAL AND 12.5 MG HYDR (1 DF DAILY)
     Route: 048
     Dates: start: 20100201

REACTIONS (9)
  - ISCHAEMIC HEPATITIS [None]
  - BLOOD PRESSURE INCREASED [None]
  - DIABETES MELLITUS [None]
  - LIVER DISORDER [None]
  - METABOLIC ACIDOSIS [None]
  - HYPERTENSION [None]
  - ELECTROLYTE IMBALANCE [None]
  - DIABETIC COMPLICATION [None]
  - HEPATITIS C [None]
